FAERS Safety Report 12965564 (Version 1)
Quarter: 2016Q4

REPORT INFORMATION
  Report Type: Spontaneous
  Country: FI (occurrence: FI)
  Receive Date: 20161122
  Receipt Date: 20161122
  Transmission Date: 20170207
  Serious: Yes (Hospitalization, Other)
  Sender: FDA-Public Use
  Company Number: FI-FERRINGPH-2016FE06005

PATIENT

DRUGS (4)
  1. MAREVAN [Concomitant]
     Active Substance: WARFARIN SODIUM
     Dosage: 18 MG (1+1+0.5+1+0.5+1+1), WEEKLY
     Route: 048
     Dates: start: 20161017
  2. FIRMAGON [Suspect]
     Active Substance: DEGARELIX ACETATE
     Indication: PROSTATE CANCER
     Dosage: 80 MG, MONTHLY
     Route: 058
     Dates: start: 20160115, end: 20161026
  3. FURESIS [Concomitant]
     Active Substance: FUROSEMIDE
     Dosage: 60 (40 + 20) MG, DAILY
     Route: 048
  4. DIGOXIN ORION [Concomitant]
     Dosage: 0.062 MG, 1 TIME DAILY
     Route: 048

REACTIONS (7)
  - Malaise [Unknown]
  - Tachycardia [Unknown]
  - Injection site mass [Unknown]
  - Acute myocardial infarction [Unknown]
  - Tachycardia [Unknown]
  - Acute myocardial infarction [Unknown]
  - Malaise [Unknown]

NARRATIVE: CASE EVENT DATE: 20160704
